FAERS Safety Report 7907250-8 (Version None)
Quarter: 2011Q4

REPORT INFORMATION
  Report Type: 
  Country: None (occurrence: None)
  Receive Date: 20111109
  Receipt Date: 20111109
  Transmission Date: 20120403
  Serious: Yes (Hospitalization)
  Sender: FDA-Public Use
  Company Number: None

PATIENT
  Sex: Female
  Weight: 86.5 kg

DRUGS (6)
  1. DOXORUBICIN HCL [Suspect]
     Dosage: 89.6 MG
  2. PREDNISONE TAB [Suspect]
     Dosage: 1200 MG
  3. RITUXIMAB (MOAB C2B8 ANTI CD20 CHIMERIC) [Suspect]
     Dosage: 713 MG
  4. ETOPOSIDE [Suspect]
     Dosage: 448 MG
  5. CYCLOPHOSPHAMIDE [Suspect]
     Dosage: 1680 MG
  6. VINCRISTINE SULFATE [Suspect]
     Dosage: 3 MG

REACTIONS (2)
  - FEBRILE NEUTROPENIA [None]
  - ILEUS [None]
